FAERS Safety Report 9901709 (Version 1)
Quarter: 2014Q1

REPORT INFORMATION
  Report Type: Spontaneous
  Country: CZ (occurrence: CZ)
  Receive Date: 20140217
  Receipt Date: 20140217
  Transmission Date: 20141002
  Serious: Yes (Other)
  Sender: FDA-Public Use
  Company Number: CZ-ELI_LILLY_AND_COMPANY-CZ201402002054

PATIENT
  Age: 31 Year
  Sex: Male

DRUGS (2)
  1. ZYPADHERA [Suspect]
     Indication: SCHIZOPHRENIA, PARANOID TYPE
     Dosage: : EVERY 4 WEEKS405 MG, MONTHLY (1/M)
     Dates: start: 20121115
  2. LEPONEX [Concomitant]
     Indication: SCHIZOPHRENIA, PARANOID TYPE
     Dosage: 300 MG, QD
     Route: 065
     Dates: start: 2008

REACTIONS (6)
  - Injection site infection [Recovered/Resolved]
  - Injection site pain [Recovered/Resolved]
  - Injection site oedema [Recovered/Resolved]
  - Injection site induration [Recovered/Resolved]
  - Pyrexia [Recovered/Resolved]
  - Asthenia [Recovered/Resolved]
